FAERS Safety Report 6015344-X (Version None)
Quarter: 2008Q4

REPORT INFORMATION
  Report Type: 
  Country: None (occurrence: None)
  Receive Date: 20081218
  Receipt Date: 20081209
  Transmission Date: 20090506
  Serious: Yes (Life-Threatening)
  Sender: FDA-Public Use
  Company Number: 005199

PATIENT
  Age: 34 Year
  Sex: Male

DRUGS (6)
  1. BUSULFEX [Suspect]
     Indication: STEM CELL TRANSPLANT
     Dosage: 6.67 ML QID
     Route: 042
     Dates: start: 20070905, end: 20070908
  2. ENDOXAN NET (CYCLOPHOSPHAMIDE) [Suspect]
     Dates: start: 20070909, end: 20070910
  3. DEPAKENE [Concomitant]
  4. FILGRASTIM (FILGRASTIM) [Concomitant]
  5. METHOTREXATE [Concomitant]
  6. TACROLIMUS [Concomitant]

REACTIONS (6)
  - ANOREXIA [None]
  - BONE MARROW TRANSPLANT REJECTION [None]
  - MALAISE [None]
  - NAUSEA [None]
  - PHARYNGITIS [None]
  - VOMITING [None]
